FAERS Safety Report 9378588 (Version 2)
Quarter: 2013Q3

REPORT INFORMATION
  Report Type: Spontaneous
  Country: US (occurrence: US)
  Receive Date: 20130702
  Receipt Date: 20130829
  Transmission Date: 20140515
  Serious: Yes (Life-Threatening, Hospitalization, Other)
  Sender: FDA-Public Use
  Company Number: US-AMGEN-USASP2013045731

PATIENT
  Age: 77 Year
  Sex: Female

DRUGS (1)
  1. ENBREL [Suspect]
     Indication: RHEUMATOID ARTHRITIS
     Dosage: 50 MG, QWK
     Route: 058

REACTIONS (7)
  - Aortic aneurysm [Recovered/Resolved]
  - Aneurysm ruptured [Recovering/Resolving]
  - Mass [Recovered/Resolved]
  - Ultrasound pelvis abnormal [Recovered/Resolved]
  - Arthralgia [Recovered/Resolved]
  - Blood test abnormal [Recovered/Resolved]
  - Fatigue [Not Recovered/Not Resolved]
